FAERS Safety Report 22394007 (Version 1)
Quarter: 2023Q2

REPORT INFORMATION
  Report Type: Report from Study
  Country: IT (occurrence: IT)
  Receive Date: 20230601
  Receipt Date: 20230601
  Transmission Date: 20230721
  Serious: Yes (Hospitalization)
  Sender: FDA-Public Use
  Company Number: None

PATIENT
  Age: 81 Year
  Sex: Female

DRUGS (6)
  1. HALCION [Suspect]
     Active Substance: TRIAZOLAM
     Dosage: 12500 UG
     Dates: start: 20221102, end: 20221102
  2. LORMETAZEPAM [Suspect]
     Active Substance: LORMETAZEPAM
     Dosage: 50 MG
     Dates: start: 20221102, end: 20221102
  3. HYDROCHLOROTHIAZIDE\OLMESARTAN MEDOXOMIL [Concomitant]
     Active Substance: HYDROCHLOROTHIAZIDE\OLMESARTAN MEDOXOMIL
     Dosage: 40/25
  4. LANSOPRAZOLE [Concomitant]
     Active Substance: LANSOPRAZOLE
     Dosage: 7.5 MG
  5. AMLODIPINE [Concomitant]
     Active Substance: AMLODIPINE BESYLATE
     Dosage: 5 MG
  6. SODIUM ALGINATE\SODIUM BICARBONATE [Concomitant]
     Active Substance: SODIUM ALGINATE\SODIUM BICARBONATE

REACTIONS (4)
  - Drug abuse [Recovering/Resolving]
  - Toxicity to various agents [Recovering/Resolving]
  - Sopor [Recovering/Resolving]
  - Cognitive disorder [Recovering/Resolving]

NARRATIVE: CASE EVENT DATE: 20221102
